FAERS Safety Report 5544808-8 (Version None)
Quarter: 2007Q4

REPORT INFORMATION
  Report Type: 
  Country: None (occurrence: None)
  Receive Date: 20071210
  Receipt Date: 20070108
  Transmission Date: 20080405
  Serious: No
  Sender: FDA-Public Use
  Company Number: US-AMGEN-KDL206051

PATIENT
  Sex: Female

DRUGS (2)
  1. ENBREL [Suspect]
     Indication: RHEUMATOID ARTHRITIS
     Route: 058
     Dates: start: 20000101
  2. IMURAN [Concomitant]
     Dates: start: 19800101

REACTIONS (3)
  - BLISTER [None]
  - INJECTION SITE IRRITATION [None]
  - THERMAL BURN [None]
